FAERS Safety Report 15120449 (Version 1)
Quarter: 2018Q3

REPORT INFORMATION
  Report Type: Spontaneous
  Country: US (occurrence: US)
  Receive Date: 20180709
  Receipt Date: 20180709
  Transmission Date: 20181010
  Serious: No
  Sender: FDA-Public Use
  Company Number: US-JNJFOC-20180635233

PATIENT
  Sex: Female

DRUGS (1)
  1. TOPAMAX [Suspect]
     Active Substance: TOPIRAMATE
     Indication: PRODUCT USED FOR UNKNOWN INDICATION
     Route: 048

REACTIONS (17)
  - Fatigue [Unknown]
  - Asthenia [Unknown]
  - Decreased appetite [Unknown]
  - Dysgeusia [Unknown]
  - Psychomotor skills impaired [Unknown]
  - Disturbance in attention [Unknown]
  - Nervousness [Unknown]
  - Speech disorder [Unknown]
  - Bradyphrenia [Unknown]
  - Pollakiuria [Unknown]
  - Weight decreased [Unknown]
  - Depression [Unknown]
  - Coordination abnormal [Unknown]
  - Dizziness [Unknown]
  - Memory impairment [Unknown]
  - Anxiety [Unknown]
  - Balance disorder [Unknown]
